FAERS Safety Report 15413267 (Version 2)
Quarter: 2018Q3

REPORT INFORMATION
  Report Type: Report from Study
  Country: IT (occurrence: IT)
  Receive Date: 20180921
  Receipt Date: 20180925
  Transmission Date: 20181010
  Serious: Yes (Hospitalization)
  Sender: FDA-Public Use
  Company Number: IT-PFIZER INC-2018376070

PATIENT
  Age: 80 Year
  Sex: Female

DRUGS (12)
  1. MINIAS [Concomitant]
     Active Substance: LORMETAZEPAM
     Dosage: 5 GTT, UNK
     Route: 048
  2. PARIET [Concomitant]
     Active Substance: RABEPRAZOLE SODIUM
     Dosage: 1 DF, UNK
     Route: 048
  3. INUVER [Concomitant]
     Dosage: 4 DF, UNK
     Route: 055
  4. LASIX [Interacting]
     Active Substance: FUROSEMIDE
     Indication: HYPERTENSIVE HEART DISEASE
     Dosage: 1 DF, 1X/DAY
     Route: 048
     Dates: start: 20110101, end: 20180813
  5. DIBASE [Concomitant]
     Active Substance: CHOLECALCIFEROL
     Dosage: 1 DF, UNK
     Route: 048
  6. VENITRIN [Concomitant]
     Active Substance: NITROGLYCERIN
     Dosage: 1 DF, UNK
     Route: 062
  7. CARDIOASPIRIN [Concomitant]
     Active Substance: ASPIRIN
     Dosage: 1 DF, UNK
     Route: 048
  8. LERCADIP [LERCANIDIPINE HYDROCHLORIDE] [Concomitant]
     Dosage: 1 DF, UNK
     Route: 048
  9. NICETILE [Concomitant]
     Active Substance: ACETYLCARNITINE HYDROCHLORIDE
     Dosage: 1 DF, UNK
     Route: 048
     Dates: start: 20180810, end: 20180813
  10. GLUCOPHAGE [Concomitant]
     Active Substance: METFORMIN HYDROCHLORIDE
     Dosage: 3 DF, UNK
     Route: 048
  11. EFFEXOR XR [Suspect]
     Active Substance: VENLAFAXINE HYDROCHLORIDE
     Indication: DEPRESSION
     Dosage: 1 DF, 1X/DAY
     Route: 048
     Dates: start: 20180810, end: 20180813
  12. ARLEVERTAN [Concomitant]
     Active Substance: CINNARIZINE\DIMENHYDRINATE
     Dosage: 1 DF, UNK
     Route: 048

REACTIONS (7)
  - Hyponatraemia [Recovering/Resolving]
  - Dysphagia [Recovering/Resolving]
  - Bradyphrenia [Recovering/Resolving]
  - Hallucination [Recovering/Resolving]
  - Confusional state [Recovering/Resolving]
  - Hypokinesia [Recovering/Resolving]
  - Drug interaction [Recovering/Resolving]

NARRATIVE: CASE EVENT DATE: 20180813
